FAERS Safety Report 7680140-4 (Version None)
Quarter: 2011Q3

REPORT INFORMATION
  Report Type: 
  Country: None (occurrence: None)
  Receive Date: 20110812
  Receipt Date: 20110808
  Transmission Date: 20111222
  Serious: Yes (Life-Threatening, Hospitalization)
  Sender: FDA-Public Use
  Company Number: AU-ROCHE-795646

PATIENT
  Age: 41 Year
  Sex: Male

DRUGS (5)
  1. OLANZAPINE [Suspect]
     Route: 065
  2. DIAZEPAM [Suspect]
     Route: 065
  3. MIDAZOLAM HCL [Suspect]
     Route: 065
  4. ZUCLOPENTHIXOL ACETATE [Suspect]
     Dosage: FORTNIGHTLY.
     Route: 065
  5. LORAZEPAM [Suspect]
     Route: 065

REACTIONS (10)
  - COMA [None]
  - HYPERKALAEMIA [None]
  - DYSARTHRIA [None]
  - PALPITATIONS [None]
  - OEDEMA MOUTH [None]
  - RASH [None]
  - CONVULSION [None]
  - AMNESIA [None]
  - SWOLLEN TONGUE [None]
  - INFLUENZA LIKE ILLNESS [None]
